FAERS Safety Report 6854979-9 (Version None)
Quarter: 2010Q3

REPORT INFORMATION
  Report Type: 
  Country: None (occurrence: None)
  Receive Date: 20100717
  Receipt Date: 20080516
  Transmission Date: 20110219
  Serious: No
  Sender: FDA-Public Use
  Company Number: US-PFIZER INC-2007103713

PATIENT
  Sex: Female
  Weight: 79.38 kg

DRUGS (8)
  1. CHANTIX [Suspect]
     Indication: SMOKING CESSATION THERAPY
     Dates: start: 20070101
  2. PLAVIX [Concomitant]
  3. DETROL LA [Concomitant]
  4. ZOCOR [Concomitant]
  5. IRON [Concomitant]
  6. METFORMIN HCL [Concomitant]
  7. ALPRAZOLAM [Concomitant]
  8. EFFEXOR [Concomitant]

REACTIONS (8)
  - BACK PAIN [None]
  - CONSTIPATION [None]
  - DIARRHOEA [None]
  - DIZZINESS [None]
  - DRUG INEFFECTIVE [None]
  - HEADACHE [None]
  - MALAISE [None]
  - NAUSEA [None]
